FAERS Safety Report 4302540-2 (Version None)
Quarter: 2004Q1

REPORT INFORMATION
  Report Type: 
  Country: None (occurrence: None)
  Receive Date: 20040217
  Receipt Date: 20030401
  Transmission Date: 20041129
  Serious: Yes (Other)
  Sender: FDA-Public Use
  Company Number: 2003145969US

PATIENT
  Age: 37 Year
  Sex: Female
  Weight: 63.5 kg

DRUGS (3)
  1. CYTOTEC [Suspect]
     Indication: INDUCED LABOUR
     Dosage: 1/2 DF AND 1/2 DF, VAGINAL
     Route: 067
     Dates: start: 20010308, end: 20010308
  2. NUBAIN [Concomitant]
  3. PROMETHAZINE [Concomitant]

REACTIONS (8)
  - BACK PAIN [None]
  - DIFFICULTY IN WALKING [None]
  - DYSURIA [None]
  - PAIN [None]
  - PELVIC PAIN [None]
  - PLACENTAL DISORDER [None]
  - POSTPARTUM HAEMORRHAGE [None]
  - VOMITING [None]
